FAERS Safety Report 5330824-8 (Version None)
Quarter: 2007Q2

REPORT INFORMATION
  Report Type: 
  Country: None (occurrence: None)
  Receive Date: 20070516
  Receipt Date: 20070508
  Transmission Date: 20071010
  Serious: Yes (Hospitalization)
  Sender: FDA-Public Use
  Company Number: 2007BI007995

PATIENT
  Age: 58 Year
  Sex: Male

DRUGS (1)
  1. NATALIZUMAB [Suspect]
     Indication: MULTIPLE SCLEROSIS
     Dosage: 300 MG, QM, IV
     Route: 042
     Dates: start: 20060824, end: 20060824

REACTIONS (2)
  - ARACHNOIDITIS [None]
  - CONDITION AGGRAVATED [None]
